FAERS Safety Report 4927848-9 (Version None)
Quarter: 2006Q1

REPORT INFORMATION
  Report Type: 
  Country: None (occurrence: None)
  Receive Date: 20060228
  Receipt Date: 20050927
  Transmission Date: 20060701
  Serious: Yes (Congenital Anomaly)
  Sender: FDA-Public Use
  Company Number: US-GLAXOSMITHKLINE-A0576455B

PATIENT
  Sex: Male

DRUGS (5)
  1. COMBIVIR [Suspect]
     Indication: HIV INFECTION
     Dosage: 1TAB TWICE PER DAY
     Dates: start: 20050616
  2. VIRAMUNE [Concomitant]
     Indication: HIV INFECTION
     Dosage: 200MG TWICE PER DAY
     Dates: start: 20050719
  3. LEUCOVORIN CALCIUM [Concomitant]
     Dosage: 5MG PER DAY
     Dates: start: 20050709, end: 20051124
  4. SULFADIAZINE [Concomitant]
     Dosage: 1000MG FOUR TIMES PER DAY
     Dates: start: 20050709, end: 20051124
  5. PYRIMETHAMINE TAB [Concomitant]
     Dosage: 75MG PER DAY
     Dates: start: 20050709, end: 20051124

REACTIONS (3)
  - DILATATION VENTRICULAR [None]
  - DRUG EXPOSURE DURING PREGNANCY [None]
  - ULTRASOUND SCAN ABNORMAL [None]
